FAERS Safety Report 10684040 (Version 1)
Quarter: 2014Q4

REPORT INFORMATION
  Report Type: Report from Study
  Country: US (occurrence: US)
  Receive Date: 20141230
  Receipt Date: 20141230
  Transmission Date: 20150529
  Serious: Yes (Hospitalization, Other)
  Sender: FDA-Public Use
  Company Number: US-ABBVIE-14K-163-1326399-00

PATIENT
  Age: 48 Year
  Sex: Male

DRUGS (3)
  1. VANCOMYCIN [Suspect]
     Active Substance: VANCOMYCIN
     Indication: DIARRHOEA
  2. HUMIRA [Suspect]
     Active Substance: ADALIMUMAB
     Indication: CROHN^S DISEASE
     Route: 065
     Dates: start: 2012
  3. VANCOMYCIN [Suspect]
     Active Substance: VANCOMYCIN
     Indication: GASTROINTESTINAL INFECTION
     Route: 065

REACTIONS (7)
  - Dermatitis allergic [Unknown]
  - Allergic oedema [Unknown]
  - Haematochezia [Unknown]
  - Crohn^s disease [Not Recovered/Not Resolved]
  - Infected fistula [Not Recovered/Not Resolved]
  - Fistula [Unknown]
  - Dehydration [Unknown]

NARRATIVE: CASE EVENT DATE: 2014
